FAERS Safety Report 8014063-8 (Version None)
Quarter: 2011Q4

REPORT INFORMATION
  Report Type: 
  Country: None (occurrence: None)
  Receive Date: 20111229
  Receipt Date: 20111102
  Transmission Date: 20120403
  Serious: Yes (Hospitalization)
  Sender: FDA-Public Use
  Company Number: TH-ROCHE-1013030

PATIENT
  Age: 56 Year
  Sex: Male

DRUGS (2)
  1. TORSEMIDE [Suspect]
     Indication: HEPATIC CIRRHOSIS
  2. LACTULOSE [Concomitant]

REACTIONS (1)
  - DRUG RASH WITH EOSINOPHILIA AND SYSTEMIC SYMPTOMS [None]
